FAERS Safety Report 6932971-3 (Version None)
Quarter: 2010Q3

REPORT INFORMATION
  Report Type: 
  Country: None (occurrence: None)
  Receive Date: 20100819
  Receipt Date: 20100816
  Transmission Date: 20110219
  Serious: Yes (Disabling)
  Sender: FDA-Public Use
  Company Number: CA-MERCK-1001CAN00201

PATIENT
  Age: 28 Year
  Sex: Male

DRUGS (1)
  1. PROPECIA [Suspect]
     Indication: ALOPECIA
     Route: 048
     Dates: start: 20080513, end: 20080529

REACTIONS (12)
  - ERECTILE DYSFUNCTION [None]
  - ERECTION INCREASED [None]
  - GENITAL HYPOAESTHESIA [None]
  - LIBIDO DECREASED [None]
  - MUSCULOSKELETAL DISCOMFORT [None]
  - ORGANIC ERECTILE DYSFUNCTION [None]
  - ORGASM ABNORMAL [None]
  - SEMEN LIQUEFACTION ABNORMAL [None]
  - SKIN DISORDER [None]
  - SWELLING FACE [None]
  - TESTICULAR ATROPHY [None]
  - WEIGHT INCREASED [None]
